FAERS Safety Report 12270389 (Version 1)
Quarter: 2016Q2

REPORT INFORMATION
  Report Type: Spontaneous
  Country: US (occurrence: None)
  Receive Date: 20160414
  Receipt Date: 20160414
  Transmission Date: 20160815
  Serious: Yes (Other)
  Sender: FDA-Public Use
  Company Number: None

PATIENT
  Age: 19 Year
  Sex: Female
  Weight: 55 kg

DRUGS (2)
  1. MAGNESIUM [Concomitant]
     Active Substance: MAGNESIUM
  2. SINGULAIR [Suspect]
     Active Substance: MONTELUKAST SODIUM
     Indication: RHINITIS ALLERGIC
     Route: 048
     Dates: start: 20131027, end: 20140119

REACTIONS (6)
  - Fatigue [None]
  - Insomnia [None]
  - Depression [None]
  - Hallucination [None]
  - Abnormal behaviour [None]
  - Suicidal ideation [None]

NARRATIVE: CASE EVENT DATE: 20160401
